FAERS Safety Report 5910066-5 (Version None)
Quarter: 2008Q4

REPORT INFORMATION
  Report Type: 
  Country: None (occurrence: None)
  Receive Date: 20081007
  Receipt Date: 20070919
  Transmission Date: 20090506
  Serious: Yes (Other)
  Sender: FDA-Public Use
  Company Number: US-ASTRAZENECA-2007UW20451

PATIENT
  Age: 70 Year
  Sex: Female

DRUGS (4)
  1. ARIMIDEX [Suspect]
     Indication: BREAST CANCER METASTATIC
     Route: 048
     Dates: start: 20070101
  2. IRON [Concomitant]
  3. CENTRUM SILVER [Concomitant]
  4. CALCIUM WITH VITAMIN D [Concomitant]

REACTIONS (4)
  - INCREASED APPETITE [None]
  - PRURITUS GENITAL [None]
  - RASH [None]
  - WEIGHT INCREASED [None]
